FAERS Safety Report 21243731 (Version 1)
Quarter: 2022Q3

REPORT INFORMATION
  Report Type: Report from Study
  Country: US (occurrence: US)
  Receive Date: 20220823
  Receipt Date: 20220823
  Transmission Date: 20221026
  Serious: Yes (Disabling)
  Sender: FDA-Public Use
  Company Number: US-MYLANLABS-2022M1088562

PATIENT
  Sex: Male
  Weight: 72.5 kg

DRUGS (4)
  1. CLOZAPINE [Suspect]
     Active Substance: CLOZAPINE
     Indication: Psychotic disorder
     Dosage: 50 MILLIGRAM, TID
     Route: 065
     Dates: start: 20211008, end: 20211101
  2. CLOZAPINE [Suspect]
     Active Substance: CLOZAPINE
     Indication: Parkinson^s disease
  3. CARBIDOPA\LEVODOPA [Concomitant]
     Active Substance: CARBIDOPA\LEVODOPA
     Dosage: UNK
     Route: 065
  4. AMANTADINE [Concomitant]
     Active Substance: AMANTADINE
     Route: 065

REACTIONS (3)
  - Drooling [Recovered/Resolved]
  - Confusional state [Recovered/Resolved]
  - Immobile [Recovered/Resolved]
